FAERS Safety Report 6172463-5 (Version None)
Quarter: 2009Q2

REPORT INFORMATION
  Report Type: 
  Country: None (occurrence: None)
  Receive Date: 20090429
  Receipt Date: 20090414
  Transmission Date: 20091009
  Serious: Yes (Death, Other)
  Sender: FDA-Public Use
  Company Number: US-GENENTECH-282013

PATIENT
  Sex: Female

DRUGS (3)
  1. AVASTIN [Suspect]
     Indication: CERVIX CARCINOMA
     Dosage: 5 MG/KG, UNK
     Route: 042
  2. CAPECITABINE [Suspect]
     Indication: CERVIX CARCINOMA
     Dosage: 2000 MG, QD
     Route: 048
  3. FLUOROURACIL [Suspect]
     Indication: CERVIX CARCINOMA
     Dosage: 250 MG, 1/WEEK
     Route: 042

REACTIONS (5)
  - ANAEMIA [None]
  - DISEASE PROGRESSION [None]
  - INTESTINAL OBSTRUCTION [None]
  - THROMBOSIS [None]
  - URINARY TRACT OBSTRUCTION [None]
